APPROVED DRUG PRODUCT: LEVETIRACETAM
Active Ingredient: LEVETIRACETAM
Strength: 500MG
Dosage Form/Route: TABLET, EXTENDED RELEASE;ORAL
Application: A212688 | Product #002 | TE Code: AB
Applicant: OVERSEAS PHARMACEUTICALS LTD
Approved: May 5, 2023 | RLD: No | RS: No | Type: RX